FAERS Safety Report 21795654 (Version 3)
Quarter: 2023Q1

REPORT INFORMATION
  Report Type: Spontaneous
  Country: JP (occurrence: JP)
  Receive Date: 20221229
  Receipt Date: 20230127
  Transmission Date: 20230417
  Serious: Yes (Death, Other)
  Sender: FDA-Public Use
  Company Number: JP-OTSUKA-2022_056140

PATIENT
  Age: 59 Year
  Sex: Male

DRUGS (3)
  1. SAMSCA [Suspect]
     Active Substance: TOLVAPTAN
     Indication: Congenital cystic kidney disease
     Dosage: 60/DAY
     Route: 048
     Dates: start: 20221119, end: 20221207
  2. FENTANYL [Concomitant]
     Active Substance: FENTANYL
     Indication: Pain
     Dosage: UNK
     Route: 065
     Dates: start: 2022, end: 2022
  3. ANPEC [MORPHINE HYDROCHLORIDE] [Concomitant]
     Indication: Analgesic therapy
     Dosage: UNK
     Route: 048

REACTIONS (5)
  - Bacterial infection [Fatal]
  - Urine output increased [Unknown]
  - Blood creatinine increased [Unknown]
  - Dehydration [Unknown]
  - Aspartate aminotransferase increased [Unknown]

NARRATIVE: CASE EVENT DATE: 20221119
